FAERS Safety Report 8045816-8 (Version None)
Quarter: 2012Q1

REPORT INFORMATION
  Report Type: 
  Country: None (occurrence: None)
  Receive Date: 20120113
  Receipt Date: 20120110
  Transmission Date: 20120608
  Serious: Yes (Other)
  Sender: FDA-Public Use
  Company Number: US-PFIZER INC-2011296771

PATIENT
  Sex: Female
  Weight: 75 kg

DRUGS (6)
  1. JANUVIA [Concomitant]
     Dosage: 100 MG, 1X/DAY
  2. ADDERALL XR 10 [Concomitant]
     Dosage: 15 MG, 1X/DAY
  3. SYNTHROID [Concomitant]
     Dosage: 0.05 MG, 1X/DAY
  4. EFFEXOR XR [Suspect]
     Indication: DEPRESSION
     Dosage: 75 MG, 1X/DAY
     Route: 048
     Dates: start: 19930101, end: 20111111
  5. CRESTOR [Concomitant]
     Dosage: 10 MG, 1X/DAY; QHS
     Route: 048
  6. VITAMIN D [Concomitant]
     Dosage: 2000 UNITS

REACTIONS (23)
  - MYALGIA [None]
  - DEPRESSION [None]
  - EMOTIONAL DISTRESS [None]
  - PHOBIA OF DRIVING [None]
  - SENSORY DISTURBANCE [None]
  - SPEECH DISORDER [None]
  - PAIN [None]
  - ARTHRALGIA [None]
  - HEADACHE [None]
  - PERSONALITY CHANGE [None]
  - BONE PAIN [None]
  - LIBIDO DECREASED [None]
  - DISTURBANCE IN ATTENTION [None]
  - HYPOAESTHESIA [None]
  - DEREALISATION [None]
  - EMOTIONAL DISORDER [None]
  - DIZZINESS [None]
  - FEAR [None]
  - PARAESTHESIA [None]
  - CONFUSIONAL STATE [None]
  - DRUG WITHDRAWAL SYNDROME [None]
  - FEELING ABNORMAL [None]
  - SOCIAL FEAR [None]
